FAERS Safety Report 6183186-0 (Version None)
Quarter: 2009Q2

REPORT INFORMATION
  Report Type: 
  Country: None (occurrence: None)
  Receive Date: 20090507
  Receipt Date: 20080910
  Transmission Date: 20091009
  Serious: Yes (Hospitalization)
  Sender: FDA-Public Use
  Company Number: US-ALEXION-A200800215

PATIENT

DRUGS (1)
  1. SOLIRIS [Suspect]
     Dosage: UNK, SINGLE
     Route: 042

REACTIONS (1)
  - HOSPITALISATION [None]
